FAERS Safety Report 5675340-9 (Version None)
Quarter: 2008Q1

REPORT INFORMATION
  Report Type: 
  Country: None (occurrence: None)
  Receive Date: 20080320
  Receipt Date: 20080317
  Transmission Date: 20080703
  Serious: Yes (Hospitalization)
  Sender: FDA-Public Use
  Company Number: US-BOEHRINGER INGELHEIM GMBH, GERMANY-2008-BP-04013BP

PATIENT
  Age: 86 Year
  Sex: Male

DRUGS (10)
  1. FLOMAX [Suspect]
     Indication: BENIGN PROSTATIC HYPERPLASIA
     Route: 048
     Dates: start: 20020101
  2. ZEBETIA [Concomitant]
     Indication: HYPERTENSION
  3. WELLBUTRIN [Concomitant]
     Indication: AFFECTIVE DISORDER
  4. BUSPAR [Concomitant]
     Indication: DEPRESSION
  5. ENABLEX [Concomitant]
     Indication: INCONTINENCE
  6. COLACE [Concomitant]
     Indication: FAECES HARD
  7. SYNTHROID [Concomitant]
     Indication: HYPOTHYROIDISM
  8. PRAVASTATIN [Concomitant]
  9. SENOKOT [Concomitant]
  10. CITRACEL [Concomitant]

REACTIONS (1)
  - DEPRESSION [None]
